FAERS Safety Report 7543252-1 (Version None)
Quarter: 2011Q2

REPORT INFORMATION
  Report Type: 
  Country: None (occurrence: None)
  Receive Date: 20110613
  Receipt Date: 20110608
  Transmission Date: 20111010
  Serious: Yes (Other)
  Sender: FDA-Public Use
  Company Number: CHPA2011DE07783

PATIENT
  Sex: Female

DRUGS (2)
  1. OTRIVEN [Suspect]
     Indication: NASAL DECONGESTION THERAPY
     Dosage: UNK, UNK
     Route: 045
     Dates: start: 20080101, end: 20110601
  2. OTRIVEN [Suspect]
     Dosage: 24 DF, QD
     Route: 045

REACTIONS (4)
  - AGGRESSION [None]
  - PALPITATIONS [None]
  - DRUG DEPENDENCE [None]
  - OVERDOSE [None]
